FAERS Safety Report 7921902-5 (Version None)
Quarter: 2011Q4

REPORT INFORMATION
  Report Type: 
  Country: None (occurrence: None)
  Receive Date: 20111117
  Receipt Date: 20111115
  Transmission Date: 20120403
  Serious: Yes (Disabling)
  Sender: FDA-Public Use
  Company Number: GXKR2011DE02312

PATIENT
  Sex: Male

DRUGS (1)
  1. AMLODIPINE [Suspect]
     Indication: HYPERTENSION
     Dosage: 10 MG, UNK
     Route: 048
     Dates: start: 20090401

REACTIONS (17)
  - ORAL PAIN [None]
  - DISTURBANCE IN ATTENTION [None]
  - BLISTER [None]
  - BURNING SENSATION [None]
  - IMPAIRED WORK ABILITY [None]
  - MUSCLE SPASMS [None]
  - BLOOD TEST ABNORMAL [None]
  - MALAISE [None]
  - OROPHARYNGEAL BLISTERING [None]
  - LOCALISED OEDEMA [None]
  - SENSATION OF PRESSURE [None]
  - GINGIVAL BLEEDING [None]
  - RESPIRATORY TRACT IRRITATION [None]
  - SKIN LESION [None]
  - ACTIVITIES OF DAILY LIVING IMPAIRED [None]
  - TOOTH DISORDER [None]
  - ILL-DEFINED DISORDER [None]
